FAERS Safety Report 4891860-9 (Version None)
Quarter: 2006Q1

REPORT INFORMATION
  Report Type: 
  Country: None (occurrence: None)
  Receive Date: 20060123
  Receipt Date: 20060105
  Transmission Date: 20060701
  Serious: No
  Sender: FDA-Public Use
  Company Number: 05H-087-0304288-00

PATIENT
  Age: 56 Year
  Sex: Male
  Weight: 44 kg

DRUGS (14)
  1. PRECEDEX [Suspect]
     Indication: SEDATION
     Dosage: 0.1 -0.7 MCG/KG/HR
     Dates: start: 20051207, end: 20051208
  2. SEVOFLURANE [Concomitant]
  3. PROPOFOL [Concomitant]
  4. DROPERIDOL [Concomitant]
  5. VECURONIUM (VECURONIUM) [Concomitant]
  6. FENTANYL [Concomitant]
  7. ALPROSTADIL [Concomitant]
  8. CALCIUM GLUCONATE [Concomitant]
  9. FUROSEMIDE [Concomitant]
  10. DOPAMINE HCL [Concomitant]
  11. HEPARIN SODIUM [Concomitant]
  12. FAMOTIDINE [Concomitant]
  13. WARFARIN SODIUM [Concomitant]
  14. INSULIN HUMAN(INSULIN HUMAN) [Concomitant]

REACTIONS (3)
  - ASPARTATE AMINOTRANSFERASE INCREASED [None]
  - BLOOD ALBUMIN DECREASED [None]
  - PROTHROMBIN TIME PROLONGED [None]
